FAERS Safety Report 5940533-X (Version None)
Quarter: 2008Q4

REPORT INFORMATION
  Report Type: 
  Country: None (occurrence: None)
  Receive Date: 20081030
  Receipt Date: 20081021
  Transmission Date: 20090506
  Serious: Yes (Death, Hospitalization)
  Sender: FDA-Public Use
  Company Number: GXKR2008IT10024

PATIENT
  Age: 30 Year
  Sex: Male

DRUGS (1)
  1. CIPROFLOXACIN [Suspect]
     Indication: URINARY TRACT INFECTION
     Dosage: 1 G/DAY, ORAL
     Route: 048

REACTIONS (15)
  - ABDOMINAL PAIN [None]
  - BUNDLE BRANCH BLOCK RIGHT [None]
  - CARDIAC FAILURE ACUTE [None]
  - CARDIO-RESPIRATORY ARREST [None]
  - CONFUSIONAL STATE [None]
  - DEHYDRATION [None]
  - HAEMOLYTIC ANAEMIA [None]
  - HYPOPERFUSION [None]
  - JAUNDICE [None]
  - MYOCARDIAL HAEMORRHAGE [None]
  - PULMONARY OEDEMA [None]
  - PYELONEPHRITIS [None]
  - PYREXIA [None]
  - THROMBOTIC THROMBOCYTOPENIC PURPURA [None]
  - VOMITING [None]
